FAERS Safety Report 5751026-7 (Version None)
Quarter: 2008Q2

REPORT INFORMATION
  Report Type: 
  Country: None (occurrence: None)
  Receive Date: 20080528
  Receipt Date: 20080521
  Transmission Date: 20081010
  Serious: Yes (Other)
  Sender: FDA-Public Use
  Company Number: GB-ALLERGAN-0806173US

PATIENT
  Sex: Female
  Weight: 45 kg

DRUGS (1)
  1. TIMOLOL MALEATE SOL UNSPECIFID [Suspect]
     Indication: INTRAOCULAR PRESSURE INCREASED
     Dosage: 1 DF, SINGLE
     Route: 047
     Dates: start: 20050101

REACTIONS (1)
  - ALOPECIA [None]
